FAERS Safety Report 9182419 (Version 1)
Quarter: 2012Q4

REPORT INFORMATION
  Report Type: 
  Country: US (occurrence: US)
  Receive Date: 20121030
  Receipt Date: 20121030
  Transmission Date: 20130627
  Serious: No
  Sender: FDA-Public Use
  Company Number: US-GLAXOSMITHKLINE-A0961605A

PATIENT
  Age: 52 Year
  Sex: Male

DRUGS (5)
  1. IMITREX [Suspect]
     Indication: MIGRAINE
     Dosage: 1SPR Every 3 days
     Route: 045
     Dates: start: 2000
  2. DIOVAN [Concomitant]
  3. ASPIRIN [Concomitant]
  4. ZEGERID [Concomitant]
  5. LEXAPRO [Concomitant]

REACTIONS (3)
  - Eye pain [Not Recovered/Not Resolved]
  - Drug ineffective [Not Recovered/Not Resolved]
  - Product quality issue [Unknown]
